FAERS Safety Report 9130146 (Version 1)
Quarter: 2013Q1

REPORT INFORMATION
  Report Type: Spontaneous
  Country: US (occurrence: US)
  Receive Date: 20130228
  Receipt Date: 20130228
  Transmission Date: 20140127
  Serious: No
  Sender: FDA-Public Use
  Company Number: US-009507513-1302USA013622

PATIENT
  Sex: 0

DRUGS (1)
  1. BCG VACCINE USP [Suspect]
     Indication: PROPHYLAXIS
     Dosage: 1 DF, UNK
     Route: 043

REACTIONS (2)
  - Vaccination error [Unknown]
  - No adverse event [Unknown]
